FAERS Safety Report 10962817 (Version 6)
Quarter: 2016Q4

REPORT INFORMATION
  Report Type: Spontaneous
  Country: US (occurrence: US)
  Receive Date: 20150327
  Receipt Date: 20161004
  Transmission Date: 20170206
  Serious: No
  Sender: FDA-Public Use
  Company Number: US-009507513-1503USA008831

PATIENT
  Sex: Female
  Weight: 62.59 kg

DRUGS (1)
  1. IMPLANON [Suspect]
     Active Substance: ETONOGESTREL
     Indication: CONTRACEPTION
     Dosage: 68 MG/3 YEARS
     Route: 059
     Dates: start: 20101217

REACTIONS (12)
  - Difficulty removing drug implant [Recovered/Resolved]
  - Metrorrhagia [Unknown]
  - Weight increased [Not Recovered/Not Resolved]
  - Incorrect drug administration duration [Unknown]
  - Depression [Unknown]
  - Menorrhagia [Not Recovered/Not Resolved]
  - Mood altered [Unknown]
  - Menstruation irregular [Not Recovered/Not Resolved]
  - Polymenorrhoea [Not Recovered/Not Resolved]
  - Complication associated with device [Not Recovered/Not Resolved]
  - Device deployment issue [Not Recovered/Not Resolved]
  - Adverse event [Not Recovered/Not Resolved]

NARRATIVE: CASE EVENT DATE: 20101217
